FAERS Safety Report 8832456 (Version 1)
Quarter: 2012Q4

REPORT INFORMATION
  Report Type: Spontaneous
  Country: US (occurrence: None)
  Receive Date: 20121005
  Receipt Date: 20121005
  Transmission Date: 20130627
  Serious: Yes (Life-Threatening, Hospitalization, Disabling)
  Sender: FDA-Public Use
  Company Number: None

PATIENT
  Age: 36 Year
  Sex: Female
  Weight: 63.5 kg

DRUGS (2)
  1. MIRENA IUD [Suspect]
     Indication: CONTRACEPTION
     Dates: start: 20110706, end: 20121003
  2. MIRENA IUD [Suspect]
     Indication: BLEEDING MENSTRUAL HEAVY
     Dates: start: 20110706, end: 20121003

REACTIONS (7)
  - Vaginal haemorrhage [None]
  - Abdominal pain [None]
  - Proctalgia [None]
  - Rectal haemorrhage [None]
  - Uterine perforation [None]
  - Device dislocation [None]
  - Gastrointestinal disorder [None]
